FAERS Safety Report 10261003 (Version 2)
Quarter: 2014Q3

REPORT INFORMATION
  Report Type: Spontaneous
  Country: US (occurrence: US)
  Receive Date: 20140626
  Receipt Date: 20140708
  Transmission Date: 20150326
  Serious: No
  Sender: FDA-Public Use
  Company Number: US-PFIZER INC-2014171550

PATIENT
  Age: 57 Year
  Sex: Male
  Weight: 112.2 kg

DRUGS (2)
  1. LYRICA [Suspect]
     Active Substance: PREGABALIN
     Indication: PARAESTHESIA
     Dosage: 150 MG, 1X/DAY
     Route: 048
     Dates: start: 201405
  2. REBIF [Concomitant]
     Active Substance: INTERFERON BETA-1A
     Indication: MULTIPLE SCLEROSIS
     Dosage: UNK

REACTIONS (11)
  - Abdominal distension [Unknown]
  - Hepatic enzyme increased [Unknown]
  - Somnolence [Unknown]
  - Eye disorder [Unknown]
  - Muscle spasms [Unknown]
  - Therapeutic response changed [Unknown]
  - Insomnia [Unknown]
  - Hypoaesthesia [Unknown]
  - Intentional product misuse [Unknown]
  - Infrequent bowel movements [Unknown]
  - Stress [Unknown]

NARRATIVE: CASE EVENT DATE: 2014
